FAERS Safety Report 7312592-3 (Version None)
Quarter: 2011Q1

REPORT INFORMATION
  Report Type: 
  Country: None (occurrence: None)
  Receive Date: 20110214
  Receipt Date: 20101210
  Transmission Date: 20110831
  Serious: Yes (Hospitalization)
  Sender: FDA-Public Use
  Company Number: IPC201012-000325

PATIENT
  Age: 67 Year
  Sex: Female

DRUGS (6)
  1. METFORMIN HYDROCHLORIDE [Suspect]
     Indication: TYPE 2 DIABETES MELLITUS
  2. ACETAMINOPHEN  / HYDROCODONE [Suspect]
  3. LISINOPRIL [Suspect]
  4. CLOPIDOGREL [Suspect]
  5. METOPROLOL TARTRATE [Suspect]
  6. ASPIRIN [Suspect]

REACTIONS (8)
  - LACTIC ACIDOSIS [None]
  - HYPOTHERMIA [None]
  - HEART RATE DECREASED [None]
  - HYPERKALAEMIA [None]
  - BLINDNESS [None]
  - BLOOD PRESSURE DIASTOLIC INCREASED [None]
  - RESPIRATORY RATE INCREASED [None]
  - DIALYSIS [None]
